FAERS Safety Report 17057963 (Version 3)
Quarter: 2019Q4

REPORT INFORMATION
  Report Type: Spontaneous
  Country: DE (occurrence: DE)
  Receive Date: 20191121
  Receipt Date: 20191220
  Transmission Date: 20200122
  Serious: Yes (Other)
  Sender: FDA-Public Use
  Company Number: DE-ASTELLAS-2019US045850

PATIENT
  Age: 47 Year
  Sex: Female

DRUGS (2)
  1. ADVAGRAF [Suspect]
     Active Substance: TACROLIMUS
     Indication: PRODUCT USED FOR UNKNOWN INDICATION
     Route: 065
     Dates: start: 20180831
  2. ADVAGRAF [Suspect]
     Active Substance: TACROLIMUS
     Indication: TRANSPLANT
     Dosage: 0.5 MG, UNKNOWN FREQ.
     Route: 065

REACTIONS (5)
  - Immunodeficiency [Unknown]
  - Immunosuppressant drug level increased [Unknown]
  - Rash macular [Unknown]
  - Bacterial infection [Unknown]
  - Inflammation [Unknown]
